FAERS Safety Report 5676451-4 (Version None)
Quarter: 2008Q1

REPORT INFORMATION
  Report Type: 
  Country: None (occurrence: None)
  Receive Date: 20080321
  Receipt Date: 20080319
  Transmission Date: 20080703
  Serious: Yes (Hospitalization)
  Sender: FDA-Public Use
  Company Number: IN-BRISTOL-MYERS SQUIBB COMPANY-14113575

PATIENT
  Age: 29 Year
  Sex: Female

DRUGS (2)
  1. ABATACEPT [Suspect]
     Indication: COLITIS ULCERATIVE
     Route: 042
     Dates: start: 20071123
  2. FEFOL [Concomitant]
     Dates: start: 20080214, end: 20080313

REACTIONS (1)
  - COLITIS ULCERATIVE [None]
